FAERS Safety Report 6475228-X (Version None)
Quarter: 2009Q4

REPORT INFORMATION
  Report Type: 
  Country: None (occurrence: None)
  Receive Date: 20091204
  Receipt Date: 20090827
  Transmission Date: 20100525
  Serious: No
  Sender: FDA-Public Use
  Company Number: US-ELI_LILLY_AND_COMPANY-US200904001389

PATIENT
  Sex: Male
  Weight: 90.703 kg

DRUGS (5)
  1. ZYPREXA [Suspect]
     Dosage: 20 MG, EACH EVENING
     Dates: start: 20020101
  2. ZYPREXA [Suspect]
     Dosage: 5 MG, EACH EVENING
     Dates: end: 20050101
  3. SEROQUEL [Concomitant]
     Dates: start: 20040101
  4. CELEXA [Concomitant]
     Dates: start: 20030101
  5. NORVAL [Concomitant]
     Dates: start: 20030101

REACTIONS (8)
  - ANXIETY [None]
  - BLOOD GLUCOSE INCREASED [None]
  - DEPRESSION [None]
  - DIABETES MELLITUS [None]
  - EMOTIONAL DISTRESS [None]
  - FATIGUE [None]
  - HYPERTENSION [None]
  - WEIGHT INCREASED [None]
